FAERS Safety Report 7936198-8 (Version None)
Quarter: 2011Q4

REPORT INFORMATION
  Report Type: 
  Country: None (occurrence: None)
  Receive Date: 20111123
  Receipt Date: 20111121
  Transmission Date: 20120403
  Serious: Yes (Other)
  Sender: FDA-Public Use
  Company Number: US-JNJFOC-20111109226

PATIENT
  Age: 84 Year
  Sex: Female
  Weight: 49.9 kg

DRUGS (5)
  1. VITAMINS NOS [Concomitant]
     Indication: PRODUCT USED FOR UNKNOWN INDICATION
     Route: 065
  2. ZYRTEC [Suspect]
     Indication: MULTIPLE ALLERGIES
     Route: 048
     Dates: start: 20111101, end: 20111101
  3. ZYRTEC [Suspect]
     Route: 048
     Dates: start: 20111101, end: 20111121
  4. LIPITOR [Concomitant]
     Indication: PRODUCT USED FOR UNKNOWN INDICATION
     Route: 065
  5. SYNTHROID [Concomitant]
     Indication: PRODUCT USED FOR UNKNOWN INDICATION
     Route: 065

REACTIONS (3)
  - WRONG DRUG ADMINISTERED [None]
  - SOMNOLENCE [None]
  - BLOOD PRESSURE INCREASED [None]
